FAERS Safety Report 15622195 (Version 1)
Quarter: 2018Q4

REPORT INFORMATION
  Report Type: Spontaneous
  Country: US (occurrence: US)
  Receive Date: 20181109
  Receipt Date: 20181109
  Transmission Date: 20190205
  Serious: No
  Sender: FDA-Public Use
  Company Number: None

PATIENT
  Age: 72 Year
  Sex: Male

DRUGS (1)
  1. GILENYA [Suspect]
     Active Substance: FINGOLIMOD HYDROCHLORIDE
     Indication: MULTIPLE SCLEROSIS
     Dosage: ?          OTHER FREQUENCY:QOD;?
     Route: 048
     Dates: start: 20160923

REACTIONS (2)
  - White blood cell count decreased [None]
  - Orthostatic hypertension [None]

NARRATIVE: CASE EVENT DATE: 20181015
